FAERS Safety Report 5194320-3 (Version None)
Quarter: 2006Q4

REPORT INFORMATION
  Report Type: 
  Country: None (occurrence: None)
  Receive Date: 20061228
  Receipt Date: 20061130
  Transmission Date: 20070319
  Serious: Yes (Hospitalization, Other)
  Sender: FDA-Public Use
  Company Number: DE-PFIZER INC-2006149384

PATIENT
  Age: 36 Year
  Sex: Female

DRUGS (6)
  1. SILDENAFIL (PAH) [Suspect]
     Indication: PULMONARY HYPERTENSION
     Route: 048
     Dates: start: 20060819, end: 20060828
  2. ILOMEDIN [Suspect]
     Indication: PULMONARY HYPERTENSION
     Dates: start: 20060927, end: 20060929
  3. TRACLEER [Suspect]
     Indication: PULMONARY HYPERTENSION
     Dates: start: 20060829, end: 20060927
  4. TRUVADA [Concomitant]
     Route: 048
  5. KALETRA [Concomitant]
     Route: 048
  6. SUSTIVA [Concomitant]

REACTIONS (8)
  - CEREBRAL HAEMORRHAGE [None]
  - CHEST PAIN [None]
  - DIPLOPIA [None]
  - EPISTAXIS [None]
  - HAEMOTHORAX [None]
  - PULMONARY HAEMORRHAGE [None]
  - TRANSAMINASES INCREASED [None]
  - VISUAL DISTURBANCE [None]
